FAERS Safety Report 24744717 (Version 1)
Quarter: 2024Q4

REPORT INFORMATION
  Report Type: Spontaneous
  Country: US (occurrence: None)
  Receive Date: 20241217
  Receipt Date: 20241217
  Transmission Date: 20250115
  Serious: Yes (Disabling)
  Sender: Public
  Company Number: None

PATIENT
  Age: 35 Year
  Sex: Female
  Weight: 56.25 kg

DRUGS (4)
  1. AIMOVIG [Suspect]
     Active Substance: ERENUMAB\ERENUMAB-AOOE
     Indication: Status migrainosus
     Dosage: OTHER FREQUENCY : ONCE A MONTH;?
     Route: 058
     Dates: start: 20240208, end: 20240308
  2. TOPAMAX [Suspect]
     Active Substance: TOPIRAMATE
  3. VITAMINS [Concomitant]
     Active Substance: VITAMINS
  4. Migshield [Concomitant]

REACTIONS (13)
  - Endometriosis [None]
  - Condition aggravated [None]
  - Nystagmus [None]
  - Tremor [None]
  - Gait disturbance [None]
  - Asthenia [None]
  - Dizziness [None]
  - Mobility decreased [None]
  - Aphasia [None]
  - Vertigo positional [None]
  - Cerebrovascular accident [None]
  - Neuralgia [None]
  - Tachycardia [None]

NARRATIVE: CASE EVENT DATE: 20240313
